FAERS Safety Report 9308061 (Version 1)
Quarter: 2013Q2

REPORT INFORMATION
  Report Type: Spontaneous
  Country: HU (occurrence: HU)
  Receive Date: 20130524
  Receipt Date: 20130524
  Transmission Date: 20140414
  Serious: Yes (Hospitalization, Other)
  Sender: FDA-Public Use
  Company Number: HU-JNJFOC-20130510969

PATIENT
  Age: 50 Year
  Sex: Male

DRUGS (1)
  1. XARELTO [Suspect]
     Indication: PULMONARY EMBOLISM
     Route: 048

REACTIONS (5)
  - Aortic stenosis [Not Recovered/Not Resolved]
  - Pulmonary embolism [Recovering/Resolving]
  - Renal failure [Unknown]
  - Left ventricular failure [Unknown]
  - General physical health deterioration [Recovered/Resolved]
